FAERS Safety Report 12648927 (Version 1)
Quarter: 2016Q3

REPORT INFORMATION
  Report Type: Spontaneous
  Country: US (occurrence: US)
  Receive Date: 20160812
  Receipt Date: 20160812
  Transmission Date: 20161109
  Serious: No
  Sender: FDA-Public Use
  Company Number: US-TAKEDA-2016TUS013741

PATIENT
  Sex: Female
  Weight: 114.29 kg

DRUGS (2)
  1. CONTRAVE [Suspect]
     Active Substance: BUPROPION HYDROCHLORIDE\NALTREXONE HYDROCHLORIDE
     Indication: OBESITY
     Dosage: 8/90 MG, BID
     Route: 048
     Dates: start: 20160510, end: 201606
  2. CONTRAVE [Suspect]
     Active Substance: BUPROPION HYDROCHLORIDE\NALTREXONE HYDROCHLORIDE
     Dosage: 8/90 MG, QID
     Route: 048
     Dates: start: 201606

REACTIONS (2)
  - Drug effect decreased [Not Recovered/Not Resolved]
  - Food craving [Not Recovered/Not Resolved]
